FAERS Safety Report 7561395-3 (Version None)
Quarter: 2011Q2

REPORT INFORMATION
  Report Type: 
  Country: None (occurrence: None)
  Receive Date: 20110621
  Receipt Date: 20100726
  Transmission Date: 20111010
  Serious: No
  Sender: FDA-Public Use
  Company Number: US-ASTRAZENECA-2010SE34770

PATIENT
  Age: 732 Month
  Sex: Female
  Weight: 64.9 kg

DRUGS (2)
  1. PULMICORT FLEXHALER [Suspect]
     Indication: ASTHMA
     Dosage: TWO PUFFS DAILY
     Route: 055
     Dates: start: 20100701
  2. RESCUE INHALER [Concomitant]

REACTIONS (2)
  - CHEST DISCOMFORT [None]
  - MALAISE [None]
